FAERS Safety Report 5672036-4 (Version None)
Quarter: 2008Q1

REPORT INFORMATION
  Report Type: 
  Country: None (occurrence: None)
  Receive Date: 20080314
  Receipt Date: 20080310
  Transmission Date: 20080703
  Serious: Yes (Hospitalization)
  Sender: FDA-Public Use
  Company Number: 2008SP004934

PATIENT
  Age: 70 Year
  Sex: Female
  Weight: 67 kg

DRUGS (14)
  1. PEG-INTRON [Suspect]
     Indication: HEPATITIS C
     Dosage: 100 MCG; QW; PO, 60 MCG; QW; PO, 50 MCG; QW; PO
     Route: 048
     Dates: start: 20060113, end: 20060222
  2. PEG-INTRON [Suspect]
     Indication: HEPATITIS C
     Dosage: 100 MCG; QW; PO, 60 MCG; QW; PO, 50 MCG; QW; PO
     Route: 048
     Dates: start: 20060301, end: 20060308
  3. PEG-INTRON [Suspect]
     Indication: HEPATITIS C
     Dosage: 100 MCG; QW; PO, 60 MCG; QW; PO, 50 MCG; QW; PO
     Route: 048
     Dates: start: 20060315, end: 20060621
  4. REBETOL [Suspect]
     Indication: HEPATITIS C
     Dosage: 400 MG; QD; PO, 200 MG; QD; PO
     Route: 048
     Dates: start: 20060113, end: 20060425
  5. REBETOL [Suspect]
     Indication: HEPATITIS C
     Dosage: 400 MG; QD; PO, 200 MG; QD; PO
     Route: 048
     Dates: start: 20060426, end: 20060621
  6. LOXONIN [Concomitant]
  7. URSO 250 [Concomitant]
  8. GLAKAY [Concomitant]
  9. MYONAL [Concomitant]
  10. ARASENA-A [Concomitant]
  11. MAGMITT [Concomitant]
  12. AMLODIN [Concomitant]
  13. BUFFERIN [Concomitant]
  14. DASEN [Concomitant]

REACTIONS (6)
  - DUODENAL ULCER [None]
  - HAEMATOCRIT DECREASED [None]
  - HAEMOGLOBIN DECREASED [None]
  - NEUTROPHIL COUNT DECREASED [None]
  - PLATELET COUNT DECREASED [None]
  - WHITE BLOOD CELL COUNT DECREASED [None]
